FAERS Safety Report 6076653-1 (Version None)
Quarter: 2009Q1

REPORT INFORMATION
  Report Type: 
  Country: None (occurrence: None)
  Receive Date: 20090211
  Receipt Date: 20090203
  Transmission Date: 20090719
  Serious: Yes (Hospitalization, Other)
  Sender: FDA-Public Use
  Company Number: 040756

PATIENT
  Age: 66 Year
  Sex: Male
  Weight: 90.7 kg

DRUGS (19)
  1. WARFARIN SODIUM [Suspect]
     Indication: ANTICOAGULANT THERAPY
     Dosage: 10 MG; QD, ORAL, 7.5 MG; QD, ORAL, 7.5 MG;1DAY/WEEK; 5 MG QD X 6D/W, ORAL, 5 MG; SIX DAYS PER WEEK)
     Route: 048
     Dates: start: 20080307, end: 20081001
  2. WARFARIN SODIUM [Suspect]
     Indication: ANTICOAGULANT THERAPY
     Dosage: 10 MG; QD, ORAL, 7.5 MG; QD, ORAL, 7.5 MG;1DAY/WEEK; 5 MG QD X 6D/W, ORAL, 5 MG; SIX DAYS PER WEEK)
     Route: 048
     Dates: start: 20081001, end: 20081201
  3. WARFARIN SODIUM [Suspect]
     Indication: ANTICOAGULANT THERAPY
     Dosage: 10 MG; QD, ORAL, 7.5 MG; QD, ORAL, 7.5 MG;1DAY/WEEK; 5 MG QD X 6D/W, ORAL, 5 MG; SIX DAYS PER WEEK)
     Route: 048
     Dates: start: 20081201, end: 20090203
  4. WARFARIN SODIUM [Suspect]
     Indication: ANTICOAGULANT THERAPY
     Dosage: 10 MG; QD, ORAL, 7.5 MG; QD, ORAL, 7.5 MG;1DAY/WEEK; 5 MG QD X 6D/W, ORAL, 5 MG; SIX DAYS PER WEEK)
     Route: 048
     Dates: start: 20081201
  5. COREG [Concomitant]
  6. GLUCOPHAGE [Concomitant]
  7. METFORMIN [Concomitant]
  8. GLUCOTROL [Concomitant]
  9. GLIPIZIDE [Concomitant]
  10. IRON (IRON) [Concomitant]
  11. ASPIRIN [Concomitant]
  12. DIPYRIDAMOLE [Concomitant]
  13. FOLIC ACID [Concomitant]
  14. LISINOPRIL [Concomitant]
  15. LASIX [Concomitant]
  16. AMIODARONE (AMIODARONE) [Concomitant]
  17. NEURONTIN [Concomitant]
  18. FENTANYL-100 [Concomitant]
  19. INSULIN (INSULIN) [Concomitant]

REACTIONS (7)
  - EPISTAXIS [None]
  - HAEMATOCHEZIA [None]
  - HAEMATOCRIT DECREASED [None]
  - HAEMOGLOBIN DECREASED [None]
  - INTERNATIONAL NORMALISED RATIO INCREASED [None]
  - LOSS OF CONSCIOUSNESS [None]
  - SYNCOPE [None]
